FAERS Safety Report 9049080 (Version 4)
Quarter: 2013Q3

REPORT INFORMATION
  Report Type: Spontaneous
  Country: US (occurrence: US)
  Receive Date: 20130205
  Receipt Date: 20130808
  Transmission Date: 20140515
  Serious: Yes (Other)
  Sender: FDA-Public Use
  Company Number: US-ROCHE-1184813

PATIENT
  Age: 70 Year
  Sex: Female
  Weight: 78.54 kg

DRUGS (1)
  1. AVASTIN [Suspect]
     Indication: OVARIAN CANCER
     Dosage: ON 23/JAN/2013, THE PATIENT RECEIVED INTRAVENOUS BEVACIZUMAB INFUSION 400 MG
     Route: 042
     Dates: start: 20120909

REACTIONS (7)
  - Confusional state [Recovered/Resolved]
  - Dysarthria [Recovered/Resolved]
  - Grip strength decreased [Unknown]
  - Disorientation [Unknown]
  - Product quality issue [Unknown]
  - Musculoskeletal disorder [Recovered/Resolved]
  - Somnolence [Unknown]
